FAERS Safety Report 24395200 (Version 1)
Quarter: 2024Q4

REPORT INFORMATION
  Report Type: Report from Study
  Country: IN (occurrence: IN)
  Receive Date: 20241004
  Receipt Date: 20241004
  Transmission Date: 20250115
  Serious: Yes (Hospitalization)
  Sender: CIPLA
  Company Number: IN-CIPLA LTD.-2024IN10771

PATIENT

DRUGS (11)
  1. TORSEMIDE [Suspect]
     Active Substance: TORSEMIDE
     Indication: Product used for unknown indication
     Dosage: UNK, DOSE USED: 10 (UNITS UNSPECIFIED), FREQUENCY 1 (UNITS UNSPECIFIED)
     Route: 048
  2. METOPROLOL SUCCINATE [Suspect]
     Active Substance: METOPROLOL SUCCINATE
     Indication: Product used for unknown indication
     Dosage: UNK, DOSE USED 2 (UNITS UNSPECIFIED), FREQUENCY 2 (UNITS UNSPECIFIED) (STRENGTH: 50/25 MG)
     Route: 048
  3. TELMA [TELMISARTAN] [Concomitant]
     Indication: Product used for unknown indication
     Dosage: UNK
     Route: 065
  4. LNBLOC [Concomitant]
     Indication: Product used for unknown indication
     Dosage: UNK
     Route: 065
  5. ROSUVASTATIN CALCIUM [Concomitant]
     Active Substance: ROSUVASTATIN CALCIUM
     Indication: Product used for unknown indication
     Dosage: UNK
     Route: 065
  6. GABAPIN NT [Concomitant]
     Indication: Product used for unknown indication
     Dosage: UNK
     Route: 065
  7. LOPEZ [LORAZEPAM] [Concomitant]
     Indication: Product used for unknown indication
     Dosage: UNK
     Route: 065
  8. SHELCAL XT [Concomitant]
     Indication: Product used for unknown indication
     Dosage: UNK
     Route: 065
  9. D RISE [Concomitant]
     Indication: Product used for unknown indication
     Dosage: UNK (60K)
     Route: 065
  10. AUGMENTIN [Concomitant]
     Active Substance: AMOXICILLIN\CLAVULANATE POTASSIUM
     Indication: Product used for unknown indication
     Dosage: UNK
     Route: 065
  11. ECONORM [Concomitant]
     Indication: Product used for unknown indication
     Dosage: UNK
     Route: 065

REACTIONS (2)
  - Cardiac disorder [Recovering/Resolving]
  - Pyrexia [Recovering/Resolving]

NARRATIVE: CASE EVENT DATE: 20240816
